FAERS Safety Report 8313939-1 (Version None)
Quarter: 2012Q2

REPORT INFORMATION
  Report Type: 
  Country: None (occurrence: None)
  Receive Date: 20120426
  Receipt Date: 20120426
  Transmission Date: 20120825
  Serious: Yes (Hospitalization, Other)
  Sender: FDA-Public Use
  Company Number: None

PATIENT

DRUGS (2)
  1. LOSARTAN POTASSIUM [Suspect]
     Indication: DIABETES PROPHYLAXIS
     Dosage: 50.0 MG
     Route: 048
     Dates: start: 20120412, end: 20120424
  2. LOSARTAN POTASSIUM [Concomitant]

REACTIONS (6)
  - NAUSEA [None]
  - CHEST PAIN [None]
  - DIZZINESS [None]
  - HYPERHIDROSIS [None]
  - VOMITING [None]
  - HEADACHE [None]
